FAERS Safety Report 8620835-9 (Version None)
Quarter: 2012Q3

REPORT INFORMATION
  Report Type: 
  Country: None (occurrence: None)
  Receive Date: 20120824
  Receipt Date: 20120813
  Transmission Date: 20120928
  Serious: Yes (Death, Hospitalization, Other)
  Sender: FDA-Public Use
  Company Number: US-JNJFOC-20120808955

PATIENT
  Sex: Male
  Weight: 103.1 kg

DRUGS (11)
  1. DOXORUBICIN HYDROCHLORIDE [Suspect]
     Indication: MULTIPLE MYELOMA
     Route: 042
  2. THALIDOMIDE [Suspect]
     Indication: MULTIPLE MYELOMA
     Route: 065
  3. ETOPOSIDE [Suspect]
     Indication: MULTIPLE MYELOMA
     Route: 065
  4. RADIATION THERAPY NOS [Suspect]
     Indication: MULTIPLE MYELOMA
     Route: 065
  5. BENDAMUSTINE HYDROCHLORIDE [Concomitant]
     Route: 065
  6. CYCLOPHOSPHAMIDE [Suspect]
     Indication: MULTIPLE MYELOMA
     Route: 065
  7. VELCADE [Suspect]
     Indication: MULTIPLE MYELOMA
     Route: 065
  8. REVLIMID [Suspect]
     Indication: MULTIPLE MYELOMA
     Route: 065
  9. DEXAMETHASONE [Suspect]
     Indication: MULTIPLE MYELOMA
     Route: 065
  10. LENALIDOMIDE [Concomitant]
     Route: 065
  11. CISPLATIN [Suspect]
     Indication: MULTIPLE MYELOMA
     Route: 065

REACTIONS (13)
  - DEATH [None]
  - DISEASE PROGRESSION [None]
  - RIB FRACTURE [None]
  - PLASMACYTOSIS [None]
  - MUCOSAL INFLAMMATION [None]
  - ABSCESS [None]
  - MOUTH HAEMORRHAGE [None]
  - DEPRESSED LEVEL OF CONSCIOUSNESS [None]
  - LETHARGY [None]
  - PSEUDOMONAS INFECTION [None]
  - HEADACHE [None]
  - PNEUMONIA [None]
  - PLEURAL EFFUSION [None]
